FAERS Safety Report 5279783-7 (Version None)
Quarter: 2007Q1

REPORT INFORMATION
  Report Type: 
  Country: None (occurrence: None)
  Receive Date: 20061220
  Receipt Date: 20060207
  Transmission Date: 20070707
  Serious: No
  Sender: FDA-Public Use
  Company Number: 250718

PATIENT
  Age: 46 Year
  Sex: Female

DRUGS (1)
  1. NOVOLOG MIX 70/30 [Suspect]
     Indication: INSULIN-REQUIRING TYPE II DIABETES MELLITUS
     Dosage: SUBCUTANEOUS
     Route: 058
     Dates: start: 20060101

REACTIONS (1)
  - ANGIOEDEMA [None]
